FAERS Safety Report 5639879-4 (Version None)
Quarter: 2008Q1

REPORT INFORMATION
  Report Type: 
  Country: None (occurrence: None)
  Receive Date: 20080227
  Receipt Date: 20080217
  Transmission Date: 20080703
  Serious: Yes (Other)
  Sender: FDA-Public Use
  Company Number: US-JNJFOC-20080203931

PATIENT
  Sex: Female
  Weight: 58.97 kg

DRUGS (1)
  1. FENTANYL TRANSDERMAL SYSTEM [Suspect]
     Indication: BACK DISORDER
     Route: 062

REACTIONS (6)
  - ADVERSE DRUG REACTION [None]
  - FEELING DRUNK [None]
  - GAIT DISTURBANCE [None]
  - INCOHERENT [None]
  - MALAISE [None]
  - THERAPY CESSATION [None]
